FAERS Safety Report 6074066-X (Version None)
Quarter: 2009Q1

REPORT INFORMATION
  Report Type: 
  Country: None (occurrence: None)
  Receive Date: 20090211
  Receipt Date: 20090203
  Transmission Date: 20090719
  Serious: Yes (Hospitalization, Other)
  Sender: FDA-Public Use
  Company Number: A0754263A

PATIENT
  Age: 19 Year
  Sex: Female
  Weight: 82.7 kg

DRUGS (3)
  1. EPZICOM [Suspect]
     Indication: HIV INFECTION
     Dosage: 300TAB PER DAY
     Route: 048
     Dates: start: 20080805, end: 20080815
  2. REYATAZ [Concomitant]
     Indication: DRUG USE FOR UNKNOWN INDICATION
     Route: 048
     Dates: start: 20080805
  3. NORVIR [Concomitant]
     Indication: DRUG USE FOR UNKNOWN INDICATION
     Dates: start: 20080805

REACTIONS (5)
  - ABDOMINAL PAIN UPPER [None]
  - PAIN [None]
  - RASH [None]
  - RASH MACULO-PAPULAR [None]
  - WHEEZING [None]
